FAERS Safety Report 22146564 (Version 2)
Quarter: 2023Q2

REPORT INFORMATION
  Report Type: Report from Study
  Country: IN (occurrence: None)
  Receive Date: 20230328
  Receipt Date: 20230426
  Transmission Date: 20230722
  Serious: Yes (Hospitalization)
  Sender: FDA-Public Use
  Company Number: 2023A069933

PATIENT
  Age: 25273 Day
  Sex: Female

DRUGS (1)
  1. FASENRA [Suspect]
     Active Substance: BENRALIZUMAB
     Indication: Asthma
     Route: 058
     Dates: start: 20230117

REACTIONS (5)
  - Peripheral swelling [Recovering/Resolving]
  - Asthenia [Recovering/Resolving]
  - Blood sodium decreased [Recovering/Resolving]
  - Blood potassium decreased [Recovering/Resolving]
  - Rash [Recovering/Resolving]
